FAERS Safety Report 10629645 (Version 1)
Quarter: 2014Q4

REPORT INFORMATION
  Report Type: Spontaneous
  Country: US (occurrence: US)
  Receive Date: 20141205
  Receipt Date: 20141205
  Transmission Date: 20150529
  Serious: No
  Sender: FDA-Public Use
  Company Number: US-BRISTOL-MYERS SQUIBB COMPANY-21473715

PATIENT
  Age: 20 Year
  Sex: Male
  Weight: 49.89 kg

DRUGS (2)
  1. ABILIFY [Suspect]
     Active Substance: ARIPIPRAZOLE
     Indication: HALLUCINATION, AUDITORY
     Dosage: INCREASED TO TWO 5MG TABS. HE TOOK 10MG TAB ON 05OCT14.
     Dates: start: 2014
  2. VYVANSE [Concomitant]
     Active Substance: LISDEXAMFETAMINE DIMESYLATE

REACTIONS (5)
  - Insomnia [Unknown]
  - Off label use [Unknown]
  - Irritability [Unknown]
  - Restlessness [Unknown]
  - Drug level changed [Unknown]

NARRATIVE: CASE EVENT DATE: 20141005
